FAERS Safety Report 24561884 (Version 3)
Quarter: 2025Q1

REPORT INFORMATION
  Report Type: Spontaneous
  Country: JP (occurrence: JP)
  Receive Date: 20241029
  Receipt Date: 20250319
  Transmission Date: 20250409
  Serious: Yes (Other)
  Sender: GENMAB
  Company Number: JP-GENMAB-2024-01774AA

PATIENT
  Age: 69 Year
  Sex: Male

DRUGS (8)
  1. EPKINLY [Suspect]
     Active Substance: EPCORITAMAB-BYSP
     Indication: Diffuse large B-cell lymphoma recurrent
     Route: 058
     Dates: start: 20240410, end: 20240410
  2. EPKINLY [Suspect]
     Active Substance: EPCORITAMAB-BYSP
     Route: 058
     Dates: start: 20240417, end: 20240417
  3. EPKINLY [Suspect]
     Active Substance: EPCORITAMAB-BYSP
     Route: 058
     Dates: start: 20240424
  4. DECADRON [Concomitant]
     Active Substance: DEXAMETHASONE
     Indication: Prophylaxis
     Dates: start: 20240410, end: 20240504
  5. DIPHENHYDRAMINE [Concomitant]
     Active Substance: DIPHENHYDRAMINE
     Indication: Prophylaxis
     Dates: start: 20240410, end: 20240501
  6. CALONAL [Concomitant]
     Active Substance: ACETAMINOPHEN
     Indication: Prophylaxis
     Dates: start: 20240410, end: 20240501
  7. ACYCLOVIR [Concomitant]
     Active Substance: ACYCLOVIR
     Indication: Prophylaxis
  8. SULFAMETHOXAZOLE\TRIMETHOPRIM [Concomitant]
     Active Substance: SULFAMETHOXAZOLE\TRIMETHOPRIM
     Indication: Prophylaxis

REACTIONS (19)
  - Hypogammaglobulinaemia [Unknown]
  - Hyperkalaemia [Unknown]
  - Cytokine release syndrome [Recovered/Resolved]
  - Cytokine release syndrome [Recovered/Resolved]
  - Swelling [Recovered/Resolved]
  - Feeling hot [Recovered/Resolved]
  - Swelling [Recovered/Resolved]
  - Feeling hot [Recovered/Resolved]
  - Swelling [Recovered/Resolved]
  - Feeling hot [Recovered/Resolved]
  - Hypoalbuminaemia [Unknown]
  - Pain [Recovered/Resolved]
  - Pain [Recovered/Resolved]
  - Pain [Recovered/Resolved]
  - Alanine aminotransferase increased [Unknown]
  - Hyponatraemia [Unknown]
  - Constipation [Unknown]
  - Decreased appetite [Unknown]
  - Injection site reaction [Unknown]

NARRATIVE: CASE EVENT DATE: 20240101
